FAERS Safety Report 11098093 (Version 2)
Quarter: 2015Q2

REPORT INFORMATION
  Report Type: Report from Study
  Country: FR (occurrence: FR)
  Receive Date: 20150507
  Receipt Date: 20150508
  Transmission Date: 20150821
  Serious: Yes (Death, Hospitalization)
  Sender: FDA-Public Use
  Company Number: FR-009507513-1504FRA020073

PATIENT
  Age: 72 Year
  Sex: Female
  Weight: 67 kg

DRUGS (5)
  1. LANTUS [Concomitant]
     Active Substance: INSULIN GLARGINE
     Dosage: UNK
     Dates: end: 20150105
  2. VANCOMYCIN [Concomitant]
     Active Substance: VANCOMYCIN
     Dosage: UNK
     Dates: start: 20141211, end: 20141226
  3. FIDAXOMICIN [Suspect]
     Active Substance: FIDAXOMICIN
     Indication: CLOSTRIDIUM DIFFICILE INFECTION
     Dosage: 400 MG, DAILY
     Route: 065
     Dates: start: 20140911, end: 20140921
  4. VANCOMYCIN [Concomitant]
     Active Substance: VANCOMYCIN
     Indication: CLOSTRIDIUM DIFFICILE INFECTION
     Dosage: 1 G, DAILY
  5. FIDAXOMICIN [Suspect]
     Active Substance: FIDAXOMICIN
     Dosage: 200 MG, QD
     Route: 048
     Dates: start: 20150104, end: 20150105

REACTIONS (10)
  - Acute kidney injury [Fatal]
  - Blood creatinine increased [Unknown]
  - Multi-organ failure [Fatal]
  - Pyelonephritis acute [Recovered/Resolved]
  - Sepsis [Unknown]
  - Cardiac failure [Unknown]
  - Dysphagia [Unknown]
  - Clostridium difficile infection [Not Recovered/Not Resolved]
  - Neurological decompensation [Unknown]
  - General physical health deterioration [Unknown]

NARRATIVE: CASE EVENT DATE: 20141113
